FAERS Safety Report 8185342-9 (Version None)
Quarter: 2012Q1

REPORT INFORMATION
  Report Type: 
  Country: None (occurrence: None)
  Receive Date: 20120305
  Receipt Date: 20120227
  Transmission Date: 20120608
  Serious: Yes (Other)
  Sender: FDA-Public Use
  Company Number: PHHY2012CA005373

PATIENT
  Sex: Female

DRUGS (6)
  1. CALCIUM [Concomitant]
     Dosage: UNK UKN, UNK
  2. ZOLEDRONOC ACID [Suspect]
     Indication: OSTEOPOROSIS
     Dosage: UNK UKN, UNK
     Route: 042
     Dates: start: 20090605
  3. VITAMIN A [Concomitant]
     Dosage: UNK UKN, UNK
  4. ZOLEDRONOC ACID [Suspect]
     Dosage: UNK UKN, UNK
     Route: 042
     Dates: start: 20100609
  5. ASCORBIC ACID [Concomitant]
     Dosage: UNK UKN, UNK
  6. VITAMIN D [Concomitant]
     Dosage: UNK UKN, UNK

REACTIONS (6)
  - DEVICE FAILURE [None]
  - OSTEOMYELITIS [None]
  - OPEN WOUND [None]
  - BONE EROSION [None]
  - PAIN [None]
  - SPINAL CORD INJURY [None]
